FAERS Safety Report 6322944-6 (Version None)
Quarter: 2009Q3

REPORT INFORMATION
  Report Type: 
  Country: None (occurrence: None)
  Receive Date: 20090824
  Receipt Date: 20090218
  Transmission Date: 20100115
  Serious: No
  Sender: FDA-Public Use
  Company Number: US-ABBOTT-09P-163-0558351-00

PATIENT
  Sex: Female
  Weight: 72.64 kg

DRUGS (15)
  1. NIASPAN [Suspect]
     Indication: BLOOD CHOLESTEROL INCREASED
     Route: 048
     Dates: start: 20090122
  2. NIASPAN [Suspect]
     Indication: LOW DENSITY LIPOPROTEIN INCREASED
  3. ASCORBIC ACID [Suspect]
     Indication: NASOPHARYNGITIS
  4. CALCIUM + VITAMIN D [Suspect]
     Indication: MINERAL SUPPLEMENTATION
  5. ONE-A-DAY WOMEN'S [Suspect]
     Indication: DRUG USE FOR UNKNOWN INDICATION
  6. PROPAFENONE HCL [Concomitant]
     Indication: ATRIAL FIBRILLATION
  7. KLOR-CON [Concomitant]
     Indication: BLOOD POTASSIUM DECREASED
  8. METFORMIN HCL [Concomitant]
     Indication: DIABETES MELLITUS
  9. TRIAMTERENE [Concomitant]
     Indication: HYPERTENSION
     Dosage: 37.5/25  MG
  10. MESTINON [Concomitant]
     Indication: MYASTHENIA GRAVIS
  11. LEVOTHYROXINE SODIUM [Concomitant]
     Indication: HYPOTHYROIDISM
  12. METOPROLOL TARTRATE [Concomitant]
     Indication: ATRIAL FIBRILLATION
  13. LISINOPRIL [Concomitant]
     Indication: HYPERTENSION
  14. COUMADIN [Concomitant]
     Indication: ATRIAL FIBRILLATION
     Dosage: 6 MG FOR 4 DAYS THEN 7 MG FOR 3 DAYS
  15. AMBIEN [Concomitant]
     Indication: INSOMNIA

REACTIONS (4)
  - DIARRHOEA [None]
  - FLUSHING [None]
  - NAUSEA [None]
  - VOMITING [None]
